FAERS Safety Report 25322253 (Version 1)
Quarter: 2025Q2

REPORT INFORMATION
  Report Type: Spontaneous
  Country: NZ (occurrence: NZ)
  Receive Date: 20250516
  Receipt Date: 20250516
  Transmission Date: 20250717
  Serious: Yes (Hospitalization)
  Sender: MERCK SHARP & DOHME LLC
  Company Number: NZ-Medsafe-160474

PATIENT
  Sex: Male

DRUGS (10)
  1. SUGAMMADEX [Suspect]
     Active Substance: SUGAMMADEX
     Route: 065
     Dates: start: 20240523, end: 20240523
  2. ROCURONIUM BROMIDE [Concomitant]
     Active Substance: ROCURONIUM BROMIDE
     Indication: Muscle relaxant therapy
     Route: 065
     Dates: start: 20240523, end: 20240523
  3. DEXAMETHASONE [Concomitant]
     Active Substance: DEXAMETHASONE
     Indication: Bronchospasm
     Route: 042
     Dates: start: 20240523, end: 20240523
  4. FLUTICASONE FUROATE\SALMETEROL XINAFOATE [Concomitant]
     Active Substance: FLUTICASONE FUROATE\SALMETEROL XINAFOATE
     Indication: Asthma
     Route: 065
  5. KETAMINE [Concomitant]
     Active Substance: KETAMINE
     Indication: Bronchospasm
     Route: 042
     Dates: start: 20240523, end: 20240523
  6. MAGNESIUM [Concomitant]
     Active Substance: MAGNESIUM
     Indication: Bronchospasm
     Route: 042
  7. PROPOFOL [Concomitant]
     Active Substance: PROPOFOL
     Indication: Anaesthesia
     Route: 065
     Dates: start: 20240523, end: 20240523
  8. REMIFENTANIL [Concomitant]
     Active Substance: REMIFENTANIL
     Indication: Anaesthesia
     Route: 065
     Dates: start: 20240523, end: 20240523
  9. ALBUTEROL [Concomitant]
     Active Substance: ALBUTEROL
     Indication: Bronchospasm
  10. CEFAZOLIN [Concomitant]
     Active Substance: CEFAZOLIN
     Dates: start: 20240523, end: 20240523

REACTIONS (1)
  - Rash [Recovered/Resolved]

NARRATIVE: CASE EVENT DATE: 20240523
